FAERS Safety Report 4694725-0 (Version None)
Quarter: 2005Q2

REPORT INFORMATION
  Report Type: 
  Country: None (occurrence: None)
  Receive Date: 20050617
  Receipt Date: 20050613
  Transmission Date: 20051028
  Serious: Yes (Other)
  Sender: FDA-Public Use
  Company Number: 200416153BCC

PATIENT
  Age: 72 Year
  Sex: Female
  Weight: 88.4514 kg

DRUGS (4)
  1. ALEVE [Suspect]
     Indication: FOOT OPERATION
     Dosage: 220 MG, QD, ORAL; 200 MG BID ORAL
     Route: 048
     Dates: start: 20041215, end: 20041216
  2. ALEVE [Suspect]
     Indication: FOOT OPERATION
     Dosage: 220 MG, QD, ORAL; 200 MG BID ORAL
     Route: 048
     Dates: start: 20041217, end: 20041219
  3. NAPROXEN [Suspect]
     Dosage: 500 MG HS
     Route: 048
     Dates: start: 20041215, end: 20041216
  4. PREVACID [Concomitant]

REACTIONS (2)
  - CHEST PAIN [None]
  - ELECTROCARDIOGRAM ABNORMAL [None]
